FAERS Safety Report 10975015 (Version 1)
Quarter: 2015Q2

REPORT INFORMATION
  Report Type: Spontaneous
  Country: JP (occurrence: JP)
  Receive Date: 20150401
  Receipt Date: 20150401
  Transmission Date: 20150821
  Serious: Yes (Death, Other)
  Sender: FDA-Public Use
  Company Number: JP-PFIZER INC-2015112563

PATIENT
  Age: 78 Year
  Sex: Male

DRUGS (1)
  1. ALDACTONE [Suspect]
     Active Substance: SPIRONOLACTONE
     Dosage: STRENGTH 25 MG
     Route: 048
     Dates: start: 201404, end: 201405

REACTIONS (2)
  - Stevens-Johnson syndrome [Fatal]
  - Acute respiratory distress syndrome [Fatal]
